FAERS Safety Report 9047393 (Version 1)
Quarter: 2013Q1

REPORT INFORMATION
  Report Type: Spontaneous
  Country: US (occurrence: US)
  Receive Date: 20130201
  Receipt Date: 20130201
  Transmission Date: 20140127
  Serious: Yes (Other)
  Sender: FDA-Public Use
  Company Number: US-COVIDIEN/TYCO HEALTHCARE/MALLINCKRODT-T201300331

PATIENT
  Sex: Female

DRUGS (1)
  1. METHADONE [Suspect]
     Dosage: UNK

REACTIONS (3)
  - Intentional drug misuse [Unknown]
  - Drug diversion [Unknown]
  - Glossodynia [Unknown]
